FAERS Safety Report 12125746 (Version 1)
Quarter: 2016Q1

REPORT INFORMATION
  Report Type: Spontaneous
  Country: US (occurrence: None)
  Receive Date: 20160226
  Receipt Date: 20160226
  Transmission Date: 20160526
  Serious: Yes (Hospitalization)
  Sender: FDA-Public Use
  Company Number: None

PATIENT
  Sex: Male
  Weight: 58.2 kg

DRUGS (17)
  1. MAGESTROL [Concomitant]
  2. DICLOFENAC SODIUM. [Concomitant]
     Active Substance: DICLOFENAC SODIUM
  3. OXYCODONE [Concomitant]
     Active Substance: OXYCODONE
  4. TEMAZEPAM. [Concomitant]
     Active Substance: TEMAZEPAM
  5. VIEKIRA PAK [Suspect]
     Active Substance: DASABUVIR\OMBITASVIR\PARITAPREVIR\RITONAVIR
     Indication: HEPATITIS C
     Dosage: 12.5/75/50/250MG BID ORAL
     Route: 048
     Dates: start: 20150806, end: 20151029
  6. OMEPRAZOLE. [Concomitant]
     Active Substance: OMEPRAZOLE
  7. IPRATROPIUM BROMIDE. [Concomitant]
     Active Substance: IPRATROPIUM BROMIDE
  8. ASPIRIN. [Concomitant]
     Active Substance: ASPIRIN
  9. TIOTROPIUM [Concomitant]
     Active Substance: TIOTROPIUM
  10. B COMPLEX WITH FOLIC ACID [Concomitant]
  11. ONDANSETRON [Concomitant]
     Active Substance: ONDANSETRON
  12. HYDROCORTISONE. [Concomitant]
     Active Substance: HYDROCORTISONE
  13. CINACALET [Concomitant]
  14. SEVELAMER CARBONATE. [Concomitant]
     Active Substance: SEVELAMER CARBONATE
  15. FLUTICASONE PROPIONATE. [Concomitant]
     Active Substance: FLUTICASONE PROPIONATE
  16. BENZONATATE. [Concomitant]
     Active Substance: BENZONATATE
  17. OXYGEN. [Concomitant]
     Active Substance: OXYGEN

REACTIONS (2)
  - Empyema [None]
  - Pleural effusion [None]

NARRATIVE: CASE EVENT DATE: 20151001
